FAERS Safety Report 12947630 (Version 2)
Quarter: 2016Q4

REPORT INFORMATION
  Report Type: Report from Study
  Country: RO (occurrence: RO)
  Receive Date: 20161116
  Receipt Date: 20161122
  Transmission Date: 20170207
  Serious: Yes (Death, Hospitalization, Other)
  Sender: FDA-Public Use
  Company Number: RO-BRISTOL-MYERS SQUIBB COMPANY-BMS-2016-096504

PATIENT
  Age: 24 Year
  Sex: Female

DRUGS (1)
  1. NIVOLUMAB [Suspect]
     Active Substance: NIVOLUMAB
     Indication: HODGKIN^S DISEASE
     Dosage: 141 MG, UNK
     Route: 042
     Dates: start: 20161107

REACTIONS (2)
  - Malignant neoplasm progression [Fatal]
  - Multiple organ dysfunction syndrome [Fatal]
